FAERS Safety Report 8216108-9 (Version None)
Quarter: 2012Q1

REPORT INFORMATION
  Report Type: 
  Country: None (occurrence: None)
  Receive Date: 20120316
  Receipt Date: 20120308
  Transmission Date: 20120608
  Serious: Yes (Hospitalization)
  Sender: FDA-Public Use
  Company Number: US-PFIZER INC-2012063810

PATIENT
  Sex: Male
  Weight: 59 kg

DRUGS (12)
  1. MORPHINE [Concomitant]
  2. TEMSIROLIMUS [Suspect]
     Indication: HEAD AND NECK CANCER METASTATIC
     Dosage: 25MG IV OVER 30-60 MINUTES ON DAYS I, 8, 15 AND 22
     Route: 042
     Dates: start: 20120113, end: 20120120
  3. INSULIN ASPART [Concomitant]
  4. INSULIN GLARGINE [Concomitant]
  5. NYSTATIN [Concomitant]
  6. POLYETHYLENE GLYCOL [Concomitant]
  7. AMLODIPINE [Concomitant]
  8. ASPIRIN [Concomitant]
  9. MULTI-VITAMINS [Concomitant]
  10. OMEPRAZOLE [Concomitant]
  11. IPRATROPIUM BROMIDE AND ALBUTEROL SULFATE [Concomitant]
  12. GUAIFENESIN [Concomitant]

REACTIONS (2)
  - HYPERGLYCAEMIA [None]
  - HYPERNATRAEMIA [None]
